FAERS Safety Report 13280626 (Version 3)
Quarter: 2019Q1

REPORT INFORMATION
  Report Type: Spontaneous
  Country: US (occurrence: US)
  Receive Date: 20170301
  Receipt Date: 20190308
  Transmission Date: 20190417
  Serious: Yes (Other)
  Sender: FDA-Public Use
  Company Number: PHEH2017US006058

PATIENT
  Age: 67 Year
  Sex: Male

DRUGS (1)
  1. TASIGNA [Suspect]
     Active Substance: NILOTINIB
     Indication: CHRONIC MYELOID LEUKAEMIA
     Dosage: UNK
     Route: 065
     Dates: start: 201011

REACTIONS (13)
  - Rhinorrhoea [Unknown]
  - Arterial occlusive disease [Unknown]
  - Hyperlipidaemia [Unknown]
  - Pruritus [Unknown]
  - Peripheral vascular disorder [Unknown]
  - Hypertension [Unknown]
  - Haemorrhage [Unknown]
  - Peripheral arterial occlusive disease [Unknown]
  - Pain in extremity [Unknown]
  - Ischaemia [Unknown]
  - Muscle spasms [Unknown]
  - Intermittent claudication [Unknown]
  - Stenosis [Unknown]

NARRATIVE: CASE EVENT DATE: 20171005
